FAERS Safety Report 10459522 (Version 1)
Quarter: 2014Q3

REPORT INFORMATION
  Report Type: Spontaneous
  Country: US (occurrence: US)
  Receive Date: 20140917
  Receipt Date: 20140917
  Transmission Date: 20150326
  Serious: Yes (Hospitalization, Other)
  Sender: FDA-Public Use
  Company Number: PHHY2014US119514

PATIENT
  Age: 73 Year
  Sex: Female

DRUGS (10)
  1. HYDROCODONE [Concomitant]
     Active Substance: HYDROCODONE
     Indication: BACK PAIN
     Dosage: 10 MG, TID
  2. ACETYLSALICYLIC ACID [Suspect]
     Active Substance: ASPIRIN
     Indication: PAIN IN EXTREMITY
  3. METOPROLOL [Concomitant]
     Active Substance: METOPROLOL
  4. ACETYLSALICYLIC ACID [Suspect]
     Active Substance: ASPIRIN
     Indication: SPINAL PAIN
     Dosage: 81 MG/DAY
  5. HYDROCODONE [Concomitant]
     Active Substance: HYDROCODONE
     Indication: PAIN IN EXTREMITY
  6. FUROSEMIDE. [Concomitant]
     Active Substance: FUROSEMIDE
  7. MORPHINE SULFATE. [Concomitant]
     Active Substance: MORPHINE SULFATE
     Indication: PAIN IN EXTREMITY
     Dosage: 15 MG, EVERY 8 HOURS
  8. MORPHINE SULFATE. [Concomitant]
     Active Substance: MORPHINE SULFATE
     Indication: BACK PAIN
     Dosage: 15 MG, BID
  9. LEVOTHYROXINE [Concomitant]
     Active Substance: LEVOTHYROXINE
  10. ANAESTHETICS [Concomitant]
     Active Substance: UNSPECIFIED INGREDIENT

REACTIONS (9)
  - Spinal column stenosis [Recovered/Resolved]
  - Abdominal pain [Recovered/Resolved]
  - Muscular weakness [Recovered/Resolved]
  - Sensory loss [Recovered/Resolved]
  - Pain [Recovered/Resolved]
  - Spinal cord compression [Recovered/Resolved]
  - Pain in extremity [Recovered/Resolved]
  - Unresponsive to stimuli [Recovered/Resolved]
  - Spinal epidural haematoma [Recovered/Resolved]
